FAERS Safety Report 10408839 (Version 1)
Quarter: 2014Q3

REPORT INFORMATION
  Report Type: Spontaneous
  Country: US (occurrence: US)
  Receive Date: 20140826
  Receipt Date: 20140826
  Transmission Date: 20150326
  Serious: No
  Sender: FDA-Public Use
  Company Number: US-BAYER-2014-126617

PATIENT
  Age: 91 Year
  Sex: Female

DRUGS (2)
  1. ENSURE [AMINO ACIDS NOS,MINERALS NOS,VITAMINS NOS] [Concomitant]
  2. ALEVE [Suspect]
     Active Substance: NAPROXEN SODIUM
     Dosage: 1 DF, PRN
     Route: 048

REACTIONS (1)
  - Intentional product misuse [None]
